FAERS Safety Report 23333150 (Version 1)
Quarter: 2023Q4

REPORT INFORMATION
  Report Type: Spontaneous
  Country: US (occurrence: None)
  Receive Date: 20231222
  Receipt Date: 20231222
  Transmission Date: 20240110
  Serious: Yes (Hospitalization)
  Sender: FDA-Public Use
  Company Number: None

PATIENT
  Age: 52 Year
  Sex: Female

DRUGS (9)
  1. AMBRISENTAN [Suspect]
     Active Substance: AMBRISENTAN
     Indication: Pulmonary arterial hypertension
  2. MOTRIN [Concomitant]
     Active Substance: IBUPROFEN
  3. LISINOPRIL/HYDROCHLOROTHI [Concomitant]
  4. FUROSEMIDE [Concomitant]
     Active Substance: FUROSEMIDE
  5. VITAMINS [Concomitant]
     Active Substance: VITAMINS
  6. SILDENAFIL [Concomitant]
     Active Substance: SILDENAFIL
  7. DIGOXIN [Concomitant]
     Active Substance: DIGOXIN
  8. ALBUTEROL SULFATE [Concomitant]
     Active Substance: ALBUTEROL SULFATE
  9. POTASSIUM CHLORIDE [Concomitant]
     Active Substance: POTASSIUM CHLORIDE

REACTIONS (8)
  - Therapy interrupted [None]
  - Insurance issue [None]
  - Illness [None]
  - Influenza [None]
  - Vomiting [None]
  - Dizziness [None]
  - Loss of consciousness [None]
  - Gait inability [None]

NARRATIVE: CASE EVENT DATE: 20231221
